FAERS Safety Report 19364537 (Version 22)
Quarter: 2025Q1

REPORT INFORMATION
  Report Type: Spontaneous
  Country: CA (occurrence: CA)
  Receive Date: 20210602
  Receipt Date: 20250214
  Transmission Date: 20250409
  Serious: Yes (Hospitalization, Disabling, Congenital Anomaly, Other)
  Sender: COVIS PHARMA GMBH
  Company Number: CA-TAKEDA-2021TUS000010

PATIENT
  Age: 80 Year
  Sex: Male
  Weight: 89 kg

DRUGS (106)
  1. ACLIDINIUM BROMIDE\FORMOTEROL FUMARATE [Suspect]
     Active Substance: ACLIDINIUM BROMIDE\FORMOTEROL FUMARATE
     Indication: Asthma
  2. ACLIDINIUM BROMIDE\FORMOTEROL FUMARATE [Suspect]
     Active Substance: ACLIDINIUM BROMIDE\FORMOTEROL FUMARATE
  3. ACLIDINIUM BROMIDE\FORMOTEROL FUMARATE [Suspect]
     Active Substance: ACLIDINIUM BROMIDE\FORMOTEROL FUMARATE
  4. ALVESCO [Suspect]
     Active Substance: CICLESONIDE
     Indication: Asthma
     Route: 065
  5. CICLESONIDE [Suspect]
     Active Substance: CICLESONIDE
     Indication: Asthma
     Route: 065
  6. ACLIDINIUM BROMIDE [Suspect]
     Active Substance: ACLIDINIUM BROMIDE
     Indication: Asthma
  7. FLUMIST [Suspect]
     Active Substance: INFLUENZA A VIRUS A/CALIFORNIA/7/2009 (H1N1) LIVE(ATTENUATED) ANTIGEN\INFLUENZA A VIRUS A/PERTH/16/2
     Indication: Immunisation
     Route: 065
  8. FLUMIST [Suspect]
     Active Substance: INFLUENZA A VIRUS A/CALIFORNIA/7/2009 (H1N1) LIVE(ATTENUATED) ANTIGEN\INFLUENZA A VIRUS A/PERTH/16/2
     Indication: Prophylaxis
  9. FLUMIST QUADRIVALENT [Suspect]
     Active Substance: INFLUENZA A VIRUS A/CALIFORNIA/7/2009 (H1N1) LIVE(ATTENUATED) ANTIGEN\INFLUENZA A VIRUS A/TEXAS/50/2
     Indication: Prophylaxis
  10. BUDESONIDE [Suspect]
     Active Substance: BUDESONIDE
     Indication: Asthma
     Dosage: 1 EVERY 1 DAYS
     Route: 065
  11. INFLUENZA VIRUS VACCINE [Suspect]
     Active Substance: INFLUENZA VIRUS VACCINE
     Indication: Prophylaxis
     Route: 065
  12. INFLUENZA VIRUS VACCINE [Suspect]
     Active Substance: INFLUENZA VIRUS VACCINE
     Indication: Immunisation
  13. ROSUVASTATIN [Suspect]
     Active Substance: ROSUVASTATIN
     Route: 065
  14. SYMBICORT [Suspect]
     Active Substance: BUDESONIDE\FORMOTEROL FUMARATE DIHYDRATE
     Indication: Asthma
     Dosage: 2 DF TWO TIMES A DAY
  15. SYMBICORT [Suspect]
     Active Substance: BUDESONIDE\FORMOTEROL FUMARATE DIHYDRATE
  16. SYMBICORT [Suspect]
     Active Substance: BUDESONIDE\FORMOTEROL FUMARATE DIHYDRATE
  17. SYMBICORT [Suspect]
     Active Substance: BUDESONIDE\FORMOTEROL FUMARATE DIHYDRATE
  18. SYMBICORT [Suspect]
     Active Substance: BUDESONIDE\FORMOTEROL FUMARATE DIHYDRATE
  19. SYMBICORT [Suspect]
     Active Substance: BUDESONIDE\FORMOTEROL FUMARATE DIHYDRATE
  20. SYMBICORT [Suspect]
     Active Substance: BUDESONIDE\FORMOTEROL FUMARATE DIHYDRATE
  21. RAMIPRIL [Suspect]
     Active Substance: RAMIPRIL
     Indication: Asthma
  22. RAMIPRIL [Suspect]
     Active Substance: RAMIPRIL
     Indication: Prophylaxis
  23. RAMIPRIL [Suspect]
     Active Substance: RAMIPRIL
     Route: 048
  24. RAMIPRIL [Suspect]
     Active Substance: RAMIPRIL
     Route: 048
  25. RAMIPRIL [Suspect]
     Active Substance: RAMIPRIL
     Route: 048
  26. RAMIPRIL [Suspect]
     Active Substance: RAMIPRIL
     Route: 048
  27. RAMIPRIL [Suspect]
     Active Substance: RAMIPRIL
     Route: 048
  28. RAMIPRIL [Suspect]
     Active Substance: RAMIPRIL
     Route: 048
  29. RAMIPRIL [Suspect]
     Active Substance: RAMIPRIL
     Route: 048
  30. RAMIPRIL [Suspect]
     Active Substance: RAMIPRIL
  31. BUDESONIDE\FORMOTEROL FUMARATE [Suspect]
     Active Substance: BUDESONIDE\FORMOTEROL FUMARATE
     Indication: Asthma
     Route: 065
  32. BUDESONIDE\FORMOTEROL FUMARATE [Suspect]
     Active Substance: BUDESONIDE\FORMOTEROL FUMARATE
     Dosage: 2 DOSAGE FORM, Q12H 12 - EVERY HOUR, EVERY 12 HOURS
  33. BUDESONIDE\FORMOTEROL FUMARATE [Suspect]
     Active Substance: BUDESONIDE\FORMOTEROL FUMARATE
     Route: 065
  34. BUDESONIDE\FORMOTEROL FUMARATE [Suspect]
     Active Substance: BUDESONIDE\FORMOTEROL FUMARATE
  35. BUDESONIDE\FORMOTEROL FUMARATE [Suspect]
     Active Substance: BUDESONIDE\FORMOTEROL FUMARATE
     Route: 065
  36. BUDESONIDE\FORMOTEROL FUMARATE [Suspect]
     Active Substance: BUDESONIDE\FORMOTEROL FUMARATE
     Dosage: 2 DOSAGE FORM, Q12H
  37. BUDESONIDE\FORMOTEROL FUMARATE [Suspect]
     Active Substance: BUDESONIDE\FORMOTEROL FUMARATE
     Dosage: 4 DOSAGE FORM, Q12H
  38. BUDESONIDE\FORMOTEROL FUMARATE [Suspect]
     Active Substance: BUDESONIDE\FORMOTEROL FUMARATE
  39. BUDESONIDE\FORMOTEROL FUMARATE [Suspect]
     Active Substance: BUDESONIDE\FORMOTEROL FUMARATE
     Route: 065
  40. BUDESONIDE\FORMOTEROL FUMARATE [Suspect]
     Active Substance: BUDESONIDE\FORMOTEROL FUMARATE
     Route: 065
  41. ALBUTEROL [Suspect]
     Active Substance: ALBUTEROL
     Indication: Prophylaxis
  42. ASPIRIN [Suspect]
     Active Substance: ASPIRIN
  43. ASPIRIN [Suspect]
     Active Substance: ASPIRIN
  44. ASPIRIN [Suspect]
     Active Substance: ASPIRIN
  45. AMLODIPINE [Suspect]
     Active Substance: AMLODIPINE BESYLATE
  46. ACETYLCYSTEINE [Suspect]
     Active Substance: ACETYLCYSTEINE
  47. AZITHROMYCIN [Suspect]
     Active Substance: AZITHROMYCIN
  48. DOXYCYCLINE [Suspect]
     Active Substance: DOXYCYCLINE
  49. LEVOFLOXACIN [Suspect]
     Active Substance: LEVOFLOXACIN
     Indication: Prophylaxis
  50. LEVOFLOXACIN [Suspect]
     Active Substance: LEVOFLOXACIN
  51. LYRICA [Suspect]
     Active Substance: PREGABALIN
  52. MELATONIN [Suspect]
     Active Substance: MELATONIN
  53. NAPROXEN [Suspect]
     Active Substance: NAPROXEN
  54. PREDNISONE [Suspect]
     Active Substance: PREDNISONE
     Indication: Asthma
  55. PREGABALIN [Suspect]
     Active Substance: PREGABALIN
  56. PREGABALIN [Suspect]
     Active Substance: PREGABALIN
  57. PREGABALIN [Suspect]
     Active Substance: PREGABALIN
  58. PREGABALIN [Suspect]
     Active Substance: PREGABALIN
  59. PREGABALIN [Suspect]
     Active Substance: PREGABALIN
  60. PREGABALIN [Suspect]
     Active Substance: PREGABALIN
  61. ALBUTEROL SULFATE [Suspect]
     Active Substance: ALBUTEROL SULFATE
     Indication: Asthma
  62. ALBUTEROL SULFATE [Suspect]
     Active Substance: ALBUTEROL SULFATE
  63. ALBUTEROL SULFATE [Suspect]
     Active Substance: ALBUTEROL SULFATE
  64. SPIRIVA [Suspect]
     Active Substance: TIOTROPIUM BROMIDE MONOHYDRATE
     Indication: Asthma
     Dosage: 1 DOSAGE FORM, QD
  65. SPIRIVA [Suspect]
     Active Substance: TIOTROPIUM BROMIDE MONOHYDRATE
  66. SPIRIVA [Suspect]
     Active Substance: TIOTROPIUM BROMIDE MONOHYDRATE
  67. SPIRIVA [Suspect]
     Active Substance: TIOTROPIUM BROMIDE MONOHYDRATE
  68. SPIRIVA [Suspect]
     Active Substance: TIOTROPIUM BROMIDE MONOHYDRATE
  69. ALBUTEROL SULFATE [Suspect]
     Active Substance: ALBUTEROL SULFATE
     Indication: Asthma
  70. ALBUTEROL SULFATE [Suspect]
     Active Substance: ALBUTEROL SULFATE
  71. ALBUTEROL SULFATE [Suspect]
     Active Substance: ALBUTEROL SULFATE
  72. FLOMAX [Suspect]
     Active Substance: TAMSULOSIN HYDROCHLORIDE
  73. FLOMAX [Suspect]
     Active Substance: TAMSULOSIN HYDROCHLORIDE
  74. FLOMAX [Suspect]
     Active Substance: TAMSULOSIN HYDROCHLORIDE
  75. FLOMAX [Suspect]
     Active Substance: TAMSULOSIN HYDROCHLORIDE
  76. FLOMAX [Suspect]
     Active Substance: TAMSULOSIN HYDROCHLORIDE
  77. FLOMAX [Suspect]
     Active Substance: TAMSULOSIN HYDROCHLORIDE
  78. FLOMAX [Suspect]
     Active Substance: TAMSULOSIN HYDROCHLORIDE
  79. FLOMAX [Suspect]
     Active Substance: TAMSULOSIN HYDROCHLORIDE
  80. FLOMAX [Suspect]
     Active Substance: TAMSULOSIN HYDROCHLORIDE
  81. TAMSULOSIN [Suspect]
     Active Substance: TAMSULOSIN
  82. ASACOL [Suspect]
     Active Substance: MESALAMINE
  83. PREVNAR 13 [Suspect]
     Active Substance: STREPTOCOCCUS PNEUMONIAE TYPE 1 CAPSULAR POLYSACCHARIDE DIPHTHERIA CRM197 PROTEIN CONJUGATE ANTIGEN\
     Indication: Prophylaxis
  84. PNEUMOCOCCAL 13-VALENT CONJUGATE VACCINE [Suspect]
     Active Substance: PNEUMOCOCCAL 13-VALENT CONJUGATE VACCINE
     Indication: Prophylaxis
  85. MESALAMINE [Suspect]
     Active Substance: MESALAMINE
  86. PANTOPRAZOLE [Suspect]
     Active Substance: PANTOPRAZOLE
  87. DOXYCYCLINE HYCLATE [Suspect]
     Active Substance: DOXYCYCLINE HYCLATE
  88. NAPROXEN SODIUM [Suspect]
     Active Substance: NAPROXEN SODIUM
  89. NAPROXEN SODIUM [Suspect]
     Active Substance: NAPROXEN SODIUM
  90. AMLODIPINE MALEATE [Suspect]
     Active Substance: AMLODIPINE MALEATE
  91. AZITHROMYCIN DIHYDRATE [Suspect]
     Active Substance: AZITHROMYCIN DIHYDRATE
  92. LEVOFLOXACIN HEMIHYDRATE [Suspect]
     Active Substance: LEVOFLOXACIN
  93. LEVOFLOXACIN HEMIHYDRATE [Suspect]
     Active Substance: LEVOFLOXACIN
  94. LEVOFLOXACIN HEMIHYDRATE [Suspect]
     Active Substance: LEVOFLOXACIN
  95. AMLODIPINE BESYLATE [Suspect]
     Active Substance: AMLODIPINE BESYLATE
  96. MORNIFLUMATE [Suspect]
     Active Substance: MORNIFLUMATE
  97. LEVOFLOXACIN [Suspect]
     Active Substance: LEVOFLOXACIN
  98. PNEUMOCOCCAL 7-VALENT CONJUGATE VACCINE (DIPHTHERIA CRM197 PROTEIN) [Suspect]
     Active Substance: PNEUMOCOCCAL 7-VALENT CONJUGATE VACCINE (DIPHTHERIA CRM197 PROTEIN)
     Indication: Prophylaxis
  99. TIOTROPIUM BROMIDE MONOHYDRATE [Suspect]
     Active Substance: TIOTROPIUM BROMIDE MONOHYDRATE
     Indication: Asthma
     Dosage: UNK UNK, QD
  100. TIOTROPIUM BROMIDE MONOHYDRATE [Suspect]
     Active Substance: TIOTROPIUM BROMIDE MONOHYDRATE
     Dosage: UNK UNK, QD
  101. TIOTROPIUM BROMIDE MONOHYDRATE [Suspect]
     Active Substance: TIOTROPIUM BROMIDE MONOHYDRATE
     Dosage: UNK UNK, QD
  102. TAMSULOSIN HYDROCHLORIDE [Suspect]
     Active Substance: TAMSULOSIN HYDROCHLORIDE
  103. SODIUM SULFATE ANHYDROUS [Suspect]
     Active Substance: SODIUM SULFATE ANHYDROUS
  104. FINASTERIDE [Suspect]
     Active Substance: FINASTERIDE
  105. TADALAFIL [Suspect]
     Active Substance: TADALAFIL
  106. ASPIRIN [Suspect]
     Active Substance: ASPIRIN

REACTIONS (28)
  - Asthma [Unknown]
  - Benign prostatic hyperplasia [Unknown]
  - Breath sounds abnormal [Unknown]
  - Bronchiectasis [Unknown]
  - Chronic obstructive pulmonary disease [Unknown]
  - Congenital hiatus hernia [Unknown]
  - Coronary artery disease [Unknown]
  - Dyspnoea [Unknown]
  - Dyspnoea exertional [Unknown]
  - Full blood count abnormal [Unknown]
  - Gastrooesophageal reflux disease [Unknown]
  - Gastrooesophageal reflux disease [Unknown]
  - Hypercholesterolaemia [Unknown]
  - Hypertension [Unknown]
  - Joint injury [Unknown]
  - Joint injury [Unknown]
  - Loss of personal independence in daily activities [Unknown]
  - Malignant melanoma in situ [Unknown]
  - Micturition urgency [Unknown]
  - Micturition urgency [Unknown]
  - Obstructive airways disorder [Unknown]
  - Off label use [Unknown]
  - Product administered to patient of inappropriate age [Unknown]
  - Productive cough [Unknown]
  - Therapeutic product effect incomplete [Unknown]
  - Transient ischaemic attack [Unknown]
  - Wheezing [Unknown]
  - Drug ineffective [Unknown]
